FAERS Safety Report 19992649 (Version 1)
Quarter: 2021Q4

REPORT INFORMATION
  Report Type: Spontaneous
  Country: US (occurrence: US)
  Receive Date: 20211025
  Receipt Date: 20211025
  Transmission Date: 20220303
  Serious: Yes (Other)
  Sender: FDA-Public Use
  Company Number: US-AMGEN-USASP2021160992

PATIENT
  Age: 48 Year
  Sex: Male
  Weight: 50 kg

DRUGS (5)
  1. MVASI [Suspect]
     Active Substance: BEVACIZUMAB-AWWB
     Indication: Colon cancer
     Dosage: 250 MILLIGRAM, Q2WK
     Route: 065
     Dates: end: 20210310
  2. LEUCOVORIN CALCIUM [Concomitant]
     Active Substance: LEUCOVORIN CALCIUM
     Indication: Colon cancer
     Dosage: 560 MILLIGRAM, Q2WK
     Dates: end: 20210310
  3. FLUOROURACIL [Concomitant]
     Active Substance: FLUOROURACIL
     Indication: Colon cancer
     Dosage: 560 MILLIGRAM, Q2WK
     Dates: end: 20210310
  4. FLUOROURACIL [Concomitant]
     Active Substance: FLUOROURACIL
     Dosage: 3660 MILLIGRAM, Q2WK
     Dates: end: 20210310
  5. OXALIPLATIN [Concomitant]
     Active Substance: OXALIPLATIN
     Indication: Colon cancer
     Dosage: 119 MILLIGRAM, Q2WK
     Dates: end: 20210310

REACTIONS (1)
  - Hypertension [Not Recovered/Not Resolved]

NARRATIVE: CASE EVENT DATE: 20211001
